FAERS Safety Report 20638159 (Version 1)
Quarter: 2022Q1

REPORT INFORMATION
  Report Type: Spontaneous
  Country: US (occurrence: US)
  Receive Date: 20220325
  Receipt Date: 20220325
  Transmission Date: 20220423
  Serious: Yes (Other)
  Sender: FDA-Public Use
  Company Number: US-PFIZER INC-202200334295

PATIENT
  Age: 75 Year
  Sex: Female

DRUGS (1)
  1. VFEND [Suspect]
     Active Substance: VORICONAZOLE
     Indication: Bronchopulmonary aspergillosis
     Dosage: 200 MG, 2X/DAY (200MG TAKE 1 TABLET BY MOUTH 2 TIMES DAILY)
     Route: 048

REACTIONS (3)
  - Pneumonia fungal [Unknown]
  - Aspergillus infection [Unknown]
  - Off label use [Unknown]
